FAERS Safety Report 9454300 (Version 2)
Quarter: 2013Q4

REPORT INFORMATION
  Report Type: Spontaneous
  Country: US (occurrence: US)
  Receive Date: 20130812
  Receipt Date: 20131111
  Transmission Date: 20140711
  Serious: Yes (Hospitalization)
  Sender: FDA-Public Use
  Company Number: US-BAYER-2013-097381

PATIENT
  Age: 20 Year
  Sex: Female
  Weight: 65.76 kg

DRUGS (26)
  1. YAZ [Suspect]
     Indication: CONTRACEPTION
     Dosage: UNK
     Dates: start: 200804, end: 200808
  2. YAZ [Suspect]
     Indication: MENSTRUAL CYCLE MANAGEMENT
  3. REMICADE [Concomitant]
     Indication: CROHN^S DISEASE
     Dosage: 10 MG/KG EVERY 6 WEEKS, LAST TAKEN: 1 WEEK AGO
     Route: 042
     Dates: start: 2007
  4. TRAMADOL [Concomitant]
     Indication: PAIN MANAGEMENT
     Dosage: 50 - 100 MG Q 6 HRS, PRN
     Dates: start: 2007
  5. ZOFRAN [Concomitant]
     Indication: NAUSEA
     Dosage: 4 - 8 MG Q 6 HRS PRN
     Dates: start: 2007
  6. ENTOCORT EC [Concomitant]
     Dosage: 3 MG, UNK
  7. PROCHLORPERAZINE [Concomitant]
     Dosage: 10 MG, UNK
  8. PREDNISONE [Concomitant]
     Dosage: 5 MG, UNK
  9. PREDNISONE [Concomitant]
     Dosage: 60 MG, EVERYDAY
  10. HYDROCODONE W/ACETAMINOPHEN [Concomitant]
     Dosage: 7.5 - 750
  11. RISPERDAL [Concomitant]
     Dosage: 1 MG, AT BEDTIME
  12. DICYCLOMINE [Concomitant]
     Dosage: 20 MG, BID
     Route: 048
  13. DICYCLOMINE [Concomitant]
     Dosage: 15 TWICE DAILY
     Route: 048
  14. PRILOSEC [Concomitant]
     Dosage: 40 MG, EVERYDAY
     Route: 048
  15. FLUCONAZOLE [Concomitant]
     Dosage: 100 MG, UNK
  16. SERTRALINE HYDROCHLORIDE [Concomitant]
     Dosage: 50 MG, UNK
  17. SERTRALINE HYDROCHLORIDE [Concomitant]
     Dosage: 25 MG, AT BEDTIME
  18. RISPERIDONE [Concomitant]
     Dosage: 1 MG, UNK
  19. FROVA [Concomitant]
     Dosage: 2.5 MG, TABLET
  20. CIPROFLOXACIN [Concomitant]
     Dosage: 500 MG, TABLET
  21. GABAPENTIN [Concomitant]
     Dosage: 100 MG, CAPSULE
     Route: 048
  22. GABAPENTIN [Concomitant]
     Dosage: 200 MG, TID
     Route: 048
  23. PANTOPRAZOLE [Concomitant]
     Dosage: 40 MG, TABLET
  24. PROBIOTICA [Concomitant]
     Dosage: AT BEDTIME
     Route: 048
  25. CALCIUM WITH VITAMIN D [Concomitant]
     Dosage: 1 TABLET AT BEDTIME
     Route: 048
  26. MULTIVITAMIN [Concomitant]
     Dosage: 1 TABLET EVERYDAY
     Route: 048

REACTIONS (1)
  - Pelvic venous thrombosis [Recovering/Resolving]
